FAERS Safety Report 4979691-2 (Version None)
Quarter: 2006Q2

REPORT INFORMATION
  Report Type: 
  Country: None (occurrence: None)
  Receive Date: 20060418
  Receipt Date: 20060403
  Transmission Date: 20061013
  Serious: Yes (Hospitalization)
  Sender: FDA-Public Use
  Company Number: ST-2006-008944

PATIENT
  Age: 62 Year
  Sex: Male

DRUGS (21)
  1. OLMESARTAN MEDOXOMIL OR PLACEBO [Suspect]
     Indication: DIABETES MELLITUS NON-INSULIN-DEPENDENT
     Dosage: 10 MG QD PO
     Route: 048
     Dates: start: 20050105, end: 20050131
  2. OLMESARTAN MEDOXOMIL OR PLACEBO [Suspect]
     Indication: DIABETIC NEPHROPATHY
     Dosage: 10 MG QD PO
     Route: 048
     Dates: start: 20050105, end: 20050131
  3. OLMESARTAN MEDOXOMIL OR PLACEBO [Suspect]
     Indication: DIABETES MELLITUS NON-INSULIN-DEPENDENT
     Dosage: 20 MG QD PO
     Route: 048
     Dates: start: 20050201, end: 20050301
  4. OLMESARTAN MEDOXOMIL OR PLACEBO [Suspect]
     Indication: DIABETIC NEPHROPATHY
     Dosage: 20 MG QD PO
     Route: 048
     Dates: start: 20050201, end: 20050301
  5. OLMESARTAN MEDOXOMIL OR PLACEBO [Suspect]
     Indication: DIABETES MELLITUS NON-INSULIN-DEPENDENT
     Dosage: 40 MG QD PO
     Route: 048
     Dates: start: 20050302, end: 20060322
  6. OLMESARTAN MEDOXOMIL OR PLACEBO [Suspect]
     Indication: DIABETIC NEPHROPATHY
     Dosage: 40 MG QD PO
     Route: 048
     Dates: start: 20050302, end: 20060322
  7. OLMESARTAN MEDOXOMIL OR PLACEBO [Suspect]
     Indication: DIABETES MELLITUS NON-INSULIN-DEPENDENT
     Dosage: 40 MG QD PO
     Route: 048
     Dates: start: 20060331
  8. OLMESARTAN MEDOXOMIL OR PLACEBO [Suspect]
     Indication: DIABETIC NEPHROPATHY
     Dosage: 40 MG QD PO
     Route: 048
     Dates: start: 20060331
  9. ASPIRIN [Concomitant]
  10. ELANTAN [Concomitant]
  11. ALLOPURINOL [Concomitant]
  12. NORVASC [Concomitant]
  13. COLCHICINE [Concomitant]
  14. ANGISED [Concomitant]
  15. AQUEOUS CREAM [Concomitant]
  16. BETNOVATE [Concomitant]
  17. EMULSIFYING OINTMENT [Concomitant]
  18. PIRITON [Concomitant]
  19. ATARAX [Concomitant]
  20. FENAZIN [Concomitant]
  21. SYNALAR [Concomitant]

REACTIONS (13)
  - BLOOD CREATININE INCREASED [None]
  - BLOOD CULTURE POSITIVE [None]
  - DERMATITIS [None]
  - DYSURIA [None]
  - HYDRONEPHROSIS [None]
  - HYPERKALAEMIA [None]
  - PROSTATE EXAMINATION ABNORMAL [None]
  - PROSTATIC SPECIFIC ANTIGEN INCREASED [None]
  - PRURITUS [None]
  - RENAL CYST [None]
  - SINUS BRADYCARDIA [None]
  - STAPHYLOCOCCAL INFECTION [None]
  - STREPTOCOCCAL INFECTION [None]
